FAERS Safety Report 26084545 (Version 2)
Quarter: 2025Q4

REPORT INFORMATION
  Report Type: Spontaneous
  Country: US (occurrence: US)
  Receive Date: 20251124
  Receipt Date: 20251204
  Transmission Date: 20260117
  Serious: No
  Sender: JOHNSON AND JOHNSON
  Company Number: US-JNJFOC-20251150396

PATIENT
  Age: 34 Year

DRUGS (2)
  1. STELARA [Suspect]
     Active Substance: USTEKINUMAB
     Indication: Product used for unknown indication
     Route: 058
  2. STELARA [Suspect]
     Active Substance: USTEKINUMAB

REACTIONS (7)
  - Needle issue [Unknown]
  - Injection site bruising [Unknown]
  - Injection site nodule [Unknown]
  - Injection site reaction [Unknown]
  - Poor quality product administered [Unknown]
  - Condition aggravated [Unknown]
  - Inflammation [Unknown]

NARRATIVE: CASE EVENT DATE: 20251001
